FAERS Safety Report 5756257-8 (Version None)
Quarter: 2008Q2

REPORT INFORMATION
  Report Type: 
  Country: None (occurrence: None)
  Receive Date: 20080602
  Receipt Date: 20080521
  Transmission Date: 20081010
  Serious: Yes (Other)
  Sender: FDA-Public Use
  Company Number: US-PFIZER INC-2008044419

PATIENT
  Sex: Female
  Weight: 92 kg

DRUGS (5)
  1. LYRICA [Suspect]
     Indication: PAIN
     Route: 048
     Dates: start: 20071101, end: 20080509
  2. HYDROCHLOROTHIAZIDE [Concomitant]
     Route: 048
  3. PREMARIN [Concomitant]
     Route: 048
  4. CYMBALTA [Concomitant]
     Route: 048
  5. CLONAZEPAM [Concomitant]
     Route: 048

REACTIONS (5)
  - EYE SWELLING [None]
  - OEDEMA MOUTH [None]
  - SKIN DISCOMFORT [None]
  - SWELLING FACE [None]
  - SWOLLEN TONGUE [None]
